FAERS Safety Report 7263434-6 (Version None)
Quarter: 2011Q1

REPORT INFORMATION
  Report Type: 
  Country: None (occurrence: None)
  Receive Date: 20110130
  Receipt Date: 20101118
  Transmission Date: 20110831
  Serious: Yes (Other)
  Sender: FDA-Public Use
  Company Number: US-ABBOTT-10P-163-0683816-00

PATIENT
  Sex: Male
  Weight: 82.174 kg

DRUGS (5)
  1. ALLOPURINOL [Concomitant]
     Indication: NEPHROLITHIASIS
  2. HUMIRA [Suspect]
     Indication: PSORIATIC ARTHROPATHY
     Dates: start: 20090101
  3. HUMIRA [Suspect]
     Dates: start: 20080101
  4. INDOMETHACIN [Concomitant]
     Indication: PSORIATIC ARTHROPATHY
  5. DOVONEX [Concomitant]
     Indication: PSORIATIC ARTHROPATHY
     Route: 061

REACTIONS (5)
  - ANKLE FRACTURE [None]
  - PAIN IN EXTREMITY [None]
  - DRUG DOSE OMISSION [None]
  - PSORIASIS [None]
  - TIBIA FRACTURE [None]
